FAERS Safety Report 8239334-1 (Version None)
Quarter: 2012Q1

REPORT INFORMATION
  Report Type: 
  Country: None (occurrence: None)
  Receive Date: 20120326
  Receipt Date: 20120315
  Transmission Date: 20120608
  Serious: Yes (Other)
  Sender: FDA-Public Use
  Company Number: 2012-00090

PATIENT
  Age: 72 Year
  Sex: Female

DRUGS (2)
  1. OXYMETAZOLINE HYDROCHLORIDE SPRAY [Suspect]
     Dosage: USED IN EACH NOSTRIL TWICE DAILY
     Route: 055
     Dates: start: 20120306
  2. SYNTHROID [Concomitant]

REACTIONS (1)
  - DRUG DEPENDENCE [None]
